FAERS Safety Report 5392700-4 (Version None)
Quarter: 2007Q3

REPORT INFORMATION
  Report Type: 
  Country: None (occurrence: None)
  Receive Date: 20070720
  Receipt Date: 20070711
  Transmission Date: 20080115
  Serious: Yes (Congenital Anomaly)
  Sender: FDA-Public Use
  Company Number: GB-ABBOTT-07P-167-0374246-00

PATIENT
  Sex: Female

DRUGS (1)
  1. VALPROATE SODIUM [Suspect]
     Indication: DRUG EXPOSURE DURING PREGNANCY
     Route: 064

REACTIONS (17)
  - ARTHRALGIA [None]
  - ATRIAL SEPTAL DEFECT [None]
  - BODY DYSMORPHIC DISORDER [None]
  - CONGENITAL FLAT FEET [None]
  - CONSTIPATION [None]
  - DEVELOPMENTAL COORDINATION DISORDER [None]
  - DEVELOPMENTAL DELAY [None]
  - ENURESIS [None]
  - FOETAL ANTICONVULSANT SYNDROME [None]
  - HYPERTONIA [None]
  - HYPONATRAEMIA [None]
  - JOINT HYPEREXTENSION [None]
  - LEARNING DISORDER [None]
  - MYOPIA [None]
  - SPEECH DISORDER DEVELOPMENTAL [None]
  - STRABISMUS [None]
  - TACHYPNOEA [None]
